FAERS Safety Report 20032936 (Version 2)
Quarter: 2022Q1

REPORT INFORMATION
  Report Type: Spontaneous
  Country: US (occurrence: US)
  Receive Date: 20211104
  Receipt Date: 20220131
  Transmission Date: 20220423
  Serious: Yes (Other)
  Sender: FDA-Public Use
  Company Number: US-NOVOPROD-860692

PATIENT
  Age: 65 Year
  Sex: Female
  Weight: 92.532 kg

DRUGS (2)
  1. FIASP [Suspect]
     Active Substance: INSULIN ASPART
     Indication: Type 2 diabetes mellitus
     Dosage: 26 IU, TID
     Route: 058
     Dates: start: 20180101
  2. FIASP [Suspect]
     Active Substance: INSULIN ASPART
     Dosage: 26 UNITS +4 UNITS FOR GLUCOSE 50}150 TIC AC
     Route: 058

REACTIONS (4)
  - Myocardial infarction [Unknown]
  - Hyperglycaemia [Recovering/Resolving]
  - Blood pressure increased [Unknown]
  - Product storage error [Unknown]

NARRATIVE: CASE EVENT DATE: 20200124
